FAERS Safety Report 9800388 (Version 1)
Quarter: 2014Q1

REPORT INFORMATION
  Report Type: Spontaneous
  Country: US (occurrence: US)
  Receive Date: 20140107
  Receipt Date: 20140107
  Transmission Date: 20141002
  Serious: No
  Sender: FDA-Public Use
  Company Number: US-009507513-1401USA001542

PATIENT
  Sex: Female

DRUGS (1)
  1. AZASITE [Suspect]
     Indication: BLEPHARITIS
     Dosage: 2 GTT, EVERY OTHER NIGHT, OFF AND ON
     Route: 047
     Dates: start: 201301

REACTIONS (1)
  - Inappropriate schedule of drug administration [Unknown]
